FAERS Safety Report 16468772 (Version 1)
Quarter: 2019Q2

REPORT INFORMATION
  Report Type: Spontaneous
  Country: US (occurrence: US)
  Receive Date: 20190514
  Receipt Date: 20190514
  Transmission Date: 20190711
  Serious: No
  Sender: FDA-Public Use
  Company Number: None

PATIENT
  Age: 57 Year
  Sex: Female
  Weight: 77.11 kg

DRUGS (2)
  1. OTREXUP [Suspect]
     Active Substance: METHOTREXATE
     Indication: SENILE OSTEOPOROSIS
  2. OTREXUP [Suspect]
     Active Substance: METHOTREXATE
     Indication: SENILE OSTEOPOROSIS
     Dosage: ?          OTHER DOSE:15MG(0.4ML) ;?
     Route: 058
     Dates: start: 201904

REACTIONS (3)
  - Nausea [None]
  - Migraine [None]
  - Alopecia [None]
